FAERS Safety Report 7972994-9 (Version None)
Quarter: 2011Q4

REPORT INFORMATION
  Report Type: 
  Country: None (occurrence: None)
  Receive Date: 20111213
  Receipt Date: 20111209
  Transmission Date: 20120403
  Serious: Yes (Hospitalization)
  Sender: FDA-Public Use
  Company Number: US-BRISTOL-MYERS SQUIBB COMPANY-14460356

PATIENT
  Age: 69 Year
  Sex: Male

DRUGS (18)
  1. AMPHOTERICIN B [Concomitant]
  2. DIOVAN [Concomitant]
     Dates: start: 20050101
  3. NEURONTIN [Concomitant]
     Dates: start: 20080821
  4. PROTONIX [Concomitant]
  5. CASPOFUNGIN ACETATE [Concomitant]
  6. NEXIUM [Concomitant]
     Dates: start: 20080301
  7. VALSARTAN [Concomitant]
     Dates: start: 20050101
  8. FLUCONAZOLE [Concomitant]
     Dates: start: 20080203
  9. SIMVASTATIN [Concomitant]
     Dates: start: 20040101
  10. LEXAPRO [Concomitant]
     Dates: start: 20081107
  11. PROTONIX [Concomitant]
  12. IPILIMUMAB [Suspect]
     Indication: MALIGNANT MELANOMA
     Dosage: INITIAL DOSE 16OCT08, ADMINISTERED ON 27NOV08; 4TH AND LAST DOSE 18-DEC08
     Route: 042
     Dates: start: 20081016, end: 20081218
  13. PREDNISONE [Concomitant]
     Dates: start: 20080203
  14. LEXAPRO [Concomitant]
  15. OPIUM TINCTURE [Concomitant]
     Dates: start: 20090118
  16. PREDNISONE [Concomitant]
     Dates: start: 20090118
  17. SIMVASTATIN [Concomitant]
     Dates: start: 20040101
  18. ASTELIN [Concomitant]

REACTIONS (8)
  - GASTROINTESTINAL FUNGAL INFECTION [None]
  - HYPOKALAEMIA [None]
  - VOMITING [None]
  - COLITIS [None]
  - HYPERTENSION [None]
  - DIARRHOEA [None]
  - NAUSEA [None]
  - PYREXIA [None]
